FAERS Safety Report 8020722-3 (Version None)
Quarter: 2012Q1

REPORT INFORMATION
  Report Type: 
  Country: None (occurrence: None)
  Receive Date: 20120104
  Receipt Date: 20111223
  Transmission Date: 20120608
  Serious: No
  Sender: FDA-Public Use
  Company Number: US-BRISTOL-MYERS SQUIBB COMPANY-16229189

PATIENT
  Age: 62 Year
  Sex: Female
  Weight: 73 kg

DRUGS (21)
  1. ZOLOFT [Suspect]
     Indication: DEPRESSION
  2. CYMBALTA [Suspect]
     Indication: ANXIETY
  3. PAXIL [Suspect]
     Indication: ANXIETY
  4. ABILIFY [Suspect]
     Indication: DEPRESSION
  5. PRISTIQ [Suspect]
     Indication: ANXIETY
  6. REMERON [Suspect]
     Indication: ANXIETY
  7. ABILIFY [Suspect]
     Indication: ANXIETY
  8. PROZAC [Suspect]
     Indication: ANXIETY
  9. PRISTIQ [Suspect]
     Indication: DEPRESSION
  10. WELLBUTRIN [Suspect]
     Indication: ANXIETY
  11. REMERON [Suspect]
     Indication: DEPRESSION
  12. PAXIL [Suspect]
     Indication: DEPRESSION
  13. NARDIL [Suspect]
     Indication: DEPRESSION
     Dates: start: 20101228
  14. NARDIL [Suspect]
     Indication: ANXIETY
     Dates: start: 20101228
  15. CYMBALTA [Suspect]
     Indication: DEPRESSION
  16. PROZAC [Suspect]
     Indication: DEPRESSION
  17. PAMELOR [Suspect]
     Indication: DEPRESSION
  18. PAMELOR [Suspect]
     Indication: ANXIETY
  19. ZOLOFT [Suspect]
     Indication: ANXIETY
  20. WELLBUTRIN [Suspect]
     Indication: DEPRESSION
  21. AMBIEN [Concomitant]
     Indication: SLEEP DISORDER

REACTIONS (1)
  - DRUG INEFFECTIVE [None]
